FAERS Safety Report 12834925 (Version 3)
Quarter: 2017Q1

REPORT INFORMATION
  Report Type: Spontaneous
  Country: AU (occurrence: AU)
  Receive Date: 20161010
  Receipt Date: 20170324
  Transmission Date: 20170428
  Serious: Yes (Other)
  Sender: FDA-Public Use
  Company Number: AU-BAUSCH-BL-2016-024074

PATIENT
  Age: 39 Year
  Sex: Female

DRUGS (6)
  1. SOLONE [Suspect]
     Active Substance: PREDNISOLONE
     Indication: JOINT SWELLING
     Route: 048
     Dates: start: 20160823, end: 20160824
  2. CORTISONE [Suspect]
     Active Substance: CORTISONE\HYDROCORTISONE
     Indication: PRODUCT USED FOR UNKNOWN INDICATION
     Route: 065
  3. SOLONE [Suspect]
     Active Substance: PREDNISOLONE
     Route: 048
     Dates: start: 20160825, end: 20160826
  4. SOLONE [Suspect]
     Active Substance: PREDNISOLONE
     Route: 048
     Dates: start: 20160827, end: 20160827
  5. THYROXINE [Concomitant]
     Active Substance: LEVOTHYROXINE
     Indication: HYPOTHYROIDISM
     Dosage: 25-50MCG
  6. SIGMACORT [Concomitant]
     Indication: PSORIASIS
     Dates: start: 201608

REACTIONS (88)
  - Immune system disorder [Unknown]
  - Insomnia [Recovered/Resolved]
  - Dry skin [Not Recovered/Not Resolved]
  - Dizziness [Recovering/Resolving]
  - Blood glucose decreased [Unknown]
  - Feeling abnormal [Recovered/Resolved]
  - Hair colour changes [Not Recovered/Not Resolved]
  - Memory impairment [Not Recovered/Not Resolved]
  - Anorectal disorder [Not Recovered/Not Resolved]
  - Vaginal haemorrhage [Not Recovered/Not Resolved]
  - Contusion [Not Recovered/Not Resolved]
  - Oedema [Not Recovered/Not Resolved]
  - Lethargy [Not Recovered/Not Resolved]
  - Migraine [Not Recovered/Not Resolved]
  - Life expectancy shortened [Not Recovered/Not Resolved]
  - Therapeutic response changed [Not Recovered/Not Resolved]
  - Flatulence [Not Recovered/Not Resolved]
  - Poor quality sleep [Not Recovered/Not Resolved]
  - Incorrect dose administered [Not Recovered/Not Resolved]
  - Conjunctival erosion [Recovered/Resolved]
  - Tinnitus [Not Recovered/Not Resolved]
  - Skin exfoliation [Unknown]
  - Skin striae [Not Recovered/Not Resolved]
  - Abdominal pain upper [Not Recovered/Not Resolved]
  - Chest pain [Not Recovered/Not Resolved]
  - Lymphocyte count decreased [Not Recovered/Not Resolved]
  - Quality of life decreased [Not Recovered/Not Resolved]
  - Acne [Not Recovered/Not Resolved]
  - Contraindicated product administered [Unknown]
  - Alopecia [Recovering/Resolving]
  - Decreased appetite [Recovered/Resolved]
  - Muscle spasms [Not Recovered/Not Resolved]
  - Irritability [Not Recovered/Not Resolved]
  - Fatigue [Recovered/Resolved]
  - Somnolence [Recovered/Resolved]
  - Cognitive disorder [Recovered/Resolved]
  - Burning sensation [Recovered/Resolved]
  - Nail disorder [Not Recovered/Not Resolved]
  - Psoriasis [Not Recovered/Not Resolved]
  - Haemorrhage [Unknown]
  - Bone disorder [Unknown]
  - Weight decreased [Recovered/Resolved]
  - Skin atrophy [Not Recovered/Not Resolved]
  - Sensitisation [Not Recovered/Not Resolved]
  - Malaise [Not Recovered/Not Resolved]
  - Ingrown hair [Not Recovered/Not Resolved]
  - Gastrointestinal tract irritation [Unknown]
  - Pigmentation disorder [Recovered/Resolved]
  - Heart rate increased [Recovered/Resolved]
  - Pruritus [Not Recovered/Not Resolved]
  - Initial insomnia [Not Recovered/Not Resolved]
  - Skin disorder [Not Recovered/Not Resolved]
  - Blood test abnormal [Not Recovered/Not Resolved]
  - Asthenia [Not Recovered/Not Resolved]
  - Sneezing [Recovered/Resolved]
  - Exposure during breast feeding [Unknown]
  - Gastrointestinal disorder [Unknown]
  - Vaginal discharge [Unknown]
  - Vertigo [Recovered/Resolved]
  - Dehydration [Recovered/Resolved]
  - Rash [Recovered/Resolved]
  - Paraesthesia [Not Recovered/Not Resolved]
  - Fear [Not Recovered/Not Resolved]
  - Psychomotor hyperactivity [Recovered/Resolved]
  - Anal haemorrhage [Unknown]
  - Hypersensitivity [Unknown]
  - Headache [Recovered/Resolved]
  - Cartilage injury [Not Recovered/Not Resolved]
  - Brain injury [Not Recovered/Not Resolved]
  - Bone pain [Unknown]
  - Eye pain [Unknown]
  - Sensitivity of teeth [Not Recovered/Not Resolved]
  - Dry eye [Not Recovered/Not Resolved]
  - Vitreous floaters [Not Recovered/Not Resolved]
  - Skin texture abnormal [Not Recovered/Not Resolved]
  - Movement disorder [Not Recovered/Not Resolved]
  - Sjogren^s syndrome [Not Recovered/Not Resolved]
  - Blood pressure decreased [Not Recovered/Not Resolved]
  - Anxiety [Recovered/Resolved]
  - Dyspnoea [Not Recovered/Not Resolved]
  - Arthropathy [Not Recovered/Not Resolved]
  - Arthralgia [Not Recovered/Not Resolved]
  - Hypertrichosis [Not Recovered/Not Resolved]
  - Hair texture abnormal [Not Recovered/Not Resolved]
  - Facial pain [Unknown]
  - Arthritis [Unknown]
  - Cushingoid [Unknown]
  - Skin fragility [Not Recovered/Not Resolved]

NARRATIVE: CASE EVENT DATE: 2016
